FAERS Safety Report 13864091 (Version 1)
Quarter: 2017Q3

REPORT INFORMATION
  Report Type: Spontaneous
  Country: US (occurrence: US)
  Receive Date: 20170811
  Receipt Date: 20170811
  Transmission Date: 20171127
  Serious: No
  Sender: FDA-Public Use
  Company Number: None

PATIENT
  Sex: Female

DRUGS (1)
  1. BUPRENORPHINE/NALOXONE [Suspect]
     Active Substance: BUPRENORPHINE\NALOXONE
     Indication: DRUG USE DISORDER
     Dosage: DOSE - 8/2 MG
     Route: 060

REACTIONS (3)
  - Product dosage form issue [None]
  - Drug ineffective [None]
  - Loss of personal independence in daily activities [None]
